FAERS Safety Report 8779639 (Version 2)
Quarter: 2012Q4

REPORT INFORMATION
  Report Type: Report from Study
  Country: US (occurrence: US)
  Receive Date: 20120911
  Receipt Date: 20121005
  Transmission Date: 20130627
  Serious: Yes (Hospitalization)
  Sender: FDA-Public Use
  Company Number: US-EISAI INC-E7389-02965-CLI-US

PATIENT
  Age: 42 Year
  Sex: Female
  Weight: 91 kg

DRUGS (8)
  1. HALAVEN [Suspect]
     Indication: BREAST CANCER
     Route: 042
     Dates: start: 20120710, end: 20120815
  2. RAMUCIRUMAB [Suspect]
     Indication: BREAST CANCER
     Route: 042
     Dates: start: 20120710, end: 20120808
  3. LASIX [Concomitant]
     Dates: start: 20120808
  4. MIRALAX [Concomitant]
     Dates: start: 20120521
  5. MOBIC [Concomitant]
     Dates: start: 20100710
  6. OXYCONTIN [Concomitant]
     Dates: start: 20120521
  7. CORTEF [Concomitant]
     Dates: start: 20120808
  8. PERCOCET [Concomitant]
     Dates: start: 20120521

REACTIONS (1)
  - Anaemia [Not Recovered/Not Resolved]
